FAERS Safety Report 9827399 (Version 2)
Quarter: 2014Q1

REPORT INFORMATION
  Report Type: Spontaneous
  Country: US (occurrence: US)
  Receive Date: 20140117
  Receipt Date: 20140130
  Transmission Date: 20141002
  Serious: Yes (Other)
  Sender: FDA-Public Use
  Company Number: US-TEVA-456736USA

PATIENT
  Age: 30 Year
  Sex: Female
  Weight: 53.57 kg

DRUGS (1)
  1. PLAN B ONE-STEP [Suspect]
     Indication: POST COITAL CONTRACEPTION
     Dosage: 1.5 MILLIGRAM DAILY;
     Route: 048
     Dates: start: 20140107, end: 20140107

REACTIONS (4)
  - Respiratory tract infection [Unknown]
  - Influenza [Unknown]
  - Abdominal discomfort [Recovered/Resolved]
  - Menstruation irregular [Unknown]
